FAERS Safety Report 9168982 (Version 3)
Quarter: 2013Q2

REPORT INFORMATION
  Report Type: Spontaneous
  Country: US (occurrence: US)
  Receive Date: 20130318
  Receipt Date: 20130411
  Transmission Date: 20140414
  Serious: Yes (Other)
  Sender: FDA-Public Use
  Company Number: US-PFIZER INC-2013087967

PATIENT
  Age: 55 Year
  Sex: Male
  Weight: 176 kg

DRUGS (5)
  1. LYRICA [Suspect]
     Indication: PAIN IN EXTREMITY
     Dosage: 150 MG, 2X/DAY
     Dates: start: 2013, end: 20130311
  2. LASIX [Concomitant]
     Indication: LOCAL SWELLING
     Dosage: UNK
  3. CYMBALTA [Concomitant]
     Dosage: UNK
  4. MIRAPEX ER [Concomitant]
     Dosage: UNK
  5. ALLOPURINOL [Concomitant]
     Dosage: UNK

REACTIONS (3)
  - Peripheral nerve injury [Not Recovered/Not Resolved]
  - Pain in extremity [Not Recovered/Not Resolved]
  - Abnormal behaviour [Unknown]
